FAERS Safety Report 23663378 (Version 9)
Quarter: 2025Q2

REPORT INFORMATION
  Report Type: Report from Study
  Country: US (occurrence: US)
  Receive Date: 20240322
  Receipt Date: 20250520
  Transmission Date: 20250717
  Serious: Yes (Other)
  Sender: ABBVIE
  Company Number: US-ABBVIE-5679176

PATIENT
  Age: 81 Year
  Sex: Female

DRUGS (6)
  1. VENCLEXTA [Suspect]
     Active Substance: VENETOCLAX
     Indication: Acute myeloid leukaemia
     Route: 048
  2. VENCLEXTA [Suspect]
     Active Substance: VENETOCLAX
     Indication: Acute myeloid leukaemia
     Dosage: 100 MG TWO TIME DAILY
     Route: 048
     Dates: start: 20240314
  3. VENCLEXTA [Suspect]
     Active Substance: VENETOCLAX
     Indication: Acute myeloid leukaemia
     Route: 048
     Dates: start: 202403, end: 202403
  4. VENCLEXTA [Suspect]
     Active Substance: VENETOCLAX
     Indication: Acute myeloid leukaemia
     Route: 048
  5. LASIX [Suspect]
     Active Substance: FUROSEMIDE
     Indication: Oedema peripheral
     Route: 065
     Dates: start: 2024, end: 2024
  6. VIDAZA [Suspect]
     Active Substance: AZACITIDINE
     Indication: Product used for unknown indication
     Route: 065

REACTIONS (37)
  - Pulmonary oedema [Recovered/Resolved]
  - Immunodeficiency [Unknown]
  - Cough [Recovered/Resolved]
  - Dizziness [Unknown]
  - Swelling [Unknown]
  - Dyspnoea [Unknown]
  - Blood urea increased [Unknown]
  - Depression [Unknown]
  - Stress [Unknown]
  - Peripheral swelling [Unknown]
  - Nocturia [Unknown]
  - Oedema peripheral [Unknown]
  - Insomnia [Unknown]
  - Fatigue [Unknown]
  - Dry eye [Unknown]
  - Weight decreased [Unknown]
  - Emotional disorder [Unknown]
  - Nausea [Unknown]
  - Ageusia [Unknown]
  - Dry mouth [Unknown]
  - Dry skin [Unknown]
  - Loss of personal independence in daily activities [Unknown]
  - Pain [Unknown]
  - Back pain [Not Recovered/Not Resolved]
  - Weight increased [Unknown]
  - Chronic kidney disease [Unknown]
  - Carbon dioxide increased [Unknown]
  - Anion gap abnormal [Unknown]
  - Lymphocyte count decreased [Unknown]
  - Neuropathy peripheral [Unknown]
  - Muscle spasms [Unknown]
  - Joint range of motion decreased [Unknown]
  - Cough [Recovering/Resolving]
  - Anxiety [Unknown]
  - Cardiac failure congestive [Unknown]
  - Intervertebral disc protrusion [Unknown]
  - Spinal osteoarthritis [Unknown]

NARRATIVE: CASE EVENT DATE: 20240101
